FAERS Safety Report 4295169-6 (Version None)
Quarter: 2004Q1

REPORT INFORMATION
  Report Type: 
  Country: None (occurrence: None)
  Receive Date: 20040216
  Receipt Date: 20020619
  Transmission Date: 20041129
  Serious: Yes (Hospitalization)
  Sender: FDA-Public Use
  Company Number: PHBS2002JP07376

PATIENT
  Age: 40 Year
  Sex: Male
  Weight: 45 kg

DRUGS (6)
  1. NEORAL [Suspect]
     Indication: BEHCET'S SYNDROME
     Dosage: 200 MG/D
     Route: 048
     Dates: start: 20020601, end: 20020617
  2. NEORAL [Suspect]
     Dosage: 100 MG/D
     Route: 048
     Dates: start: 20020601
  3. NEORAL [Suspect]
     Dosage: 200 MG/D
     Route: 048
     Dates: start: 19970101, end: 20020301
  4. NEORAL [Suspect]
     Dosage: 100 MG/D
     Route: 048
     Dates: start: 20020301, end: 20020601
  5. COLCHICINE [Suspect]
     Dosage: 1 MG/D
     Route: 048
     Dates: start: 19970101, end: 20020617
  6. EPADEL [Concomitant]
     Route: 048
     Dates: start: 20020501, end: 20020612

REACTIONS (17)
  - ALANINE AMINOTRANSFERASE INCREASED [None]
  - ANOREXIA [None]
  - ASPARTATE AMINOTRANSFERASE INCREASED [None]
  - BLOOD CREATINE PHOSPHOKINASE INCREASED [None]
  - BLOOD CREATININE INCREASED [None]
  - BLOOD LACTATE DEHYDROGENASE INCREASED [None]
  - BLOOD UREA INCREASED [None]
  - DEHYDRATION [None]
  - DIARRHOEA [None]
  - HAEMODIALYSIS [None]
  - HYPERKALAEMIA [None]
  - MALAISE [None]
  - MYOGLOBIN BLOOD INCREASED [None]
  - NEPHRITIS INTERSTITIAL [None]
  - RENAL FAILURE ACUTE [None]
  - RHABDOMYOLYSIS [None]
  - UVEITIS [None]
